FAERS Safety Report 4791147-9 (Version None)
Quarter: 2005Q4

REPORT INFORMATION
  Report Type: 
  Country: None (occurrence: None)
  Receive Date: 20051005
  Receipt Date: 20050922
  Transmission Date: 20060501
  Serious: Yes (Hospitalization)
  Sender: FDA-Public Use
  Company Number: 217986

PATIENT
  Age: 11 Year
  Sex: Male
  Weight: 62 kg

DRUGS (1)
  1. NUTROPIN AQ [Suspect]
     Indication: BONE DISORDER
     Dosage: 1.75 MG, 6/WEEK, SUBCUTANEOUS
     Route: 058
     Dates: start: 20021023, end: 20041125

REACTIONS (1)
  - SLEEP APNOEA SYNDROME [None]
